FAERS Safety Report 6962800-3 (Version None)
Quarter: 2010Q3

REPORT INFORMATION
  Report Type: 
  Country: None (occurrence: None)
  Receive Date: 20100823
  Receipt Date: 20100720
  Transmission Date: 20110219
  Serious: Yes (Hospitalization)
  Sender: FDA-Public Use
  Company Number: 015763

PATIENT
  Sex: Male
  Weight: 72.6 kg

DRUGS (3)
  1. CIMZIA [Suspect]
     Indication: CROHN'S DISEASE
     Dosage: (400 MG 1X/4 WEEKS SUBCUTANEOUS)
     Route: 058
     Dates: start: 20100414
  2. MERCAPTOPURINE [Concomitant]
  3. PREDNISONE [Concomitant]

REACTIONS (1)
  - INTESTINAL OBSTRUCTION [None]
